FAERS Safety Report 11937789 (Version 2)
Quarter: 2016Q1

REPORT INFORMATION
  Report Type: Spontaneous
  Country: JP (occurrence: JP)
  Receive Date: 20160122
  Receipt Date: 20160128
  Transmission Date: 20160526
  Serious: Yes (Death, Life-Threatening, Other)
  Sender: FDA-Public Use
  Company Number: JP-ROCHE-1697894

PATIENT
  Age: 51 Year
  Sex: Female
  Weight: 34 kg

DRUGS (1)
  1. XELODA [Suspect]
     Active Substance: CAPECITABINE
     Indication: COLON CANCER
     Route: 048
     Dates: start: 20151204, end: 20151218

REACTIONS (10)
  - Diarrhoea [Fatal]
  - Acidosis [Unknown]
  - Cardio-respiratory arrest [Unknown]
  - Pneumonia aspiration [Fatal]
  - Bone marrow failure [Unknown]
  - Vomiting [Fatal]
  - Acute respiratory distress syndrome [Fatal]
  - Disseminated intravascular coagulation [Fatal]
  - Sepsis [Unknown]
  - Febrile neutropenia [Fatal]

NARRATIVE: CASE EVENT DATE: 20151219
